FAERS Safety Report 6039984-7 (Version None)
Quarter: 2009Q1

REPORT INFORMATION
  Report Type: 
  Country: None (occurrence: None)
  Receive Date: 20090116
  Receipt Date: 20071106
  Transmission Date: 20090719
  Serious: No
  Sender: FDA-Public Use
  Company Number: US-BRISTOL-MYERS SQUIBB COMPANY-13974308

PATIENT
  Age: 24 Year
  Sex: Male

DRUGS (3)
  1. ABILIFY [Suspect]
     Indication: MOOD SWINGS
  2. CLONAZEPAM [Suspect]
     Indication: ANXIETY
  3. DEPAKOTE ER [Suspect]
     Indication: MOOD SWINGS
     Dosage: DEPAKOTE ER 1000

REACTIONS (1)
  - BLOOD BILIRUBIN INCREASED [None]
